FAERS Safety Report 10478768 (Version 1)
Quarter: 2014Q3

REPORT INFORMATION
  Report Type: Spontaneous
  Country: KR (occurrence: KR)
  Receive Date: 20140926
  Receipt Date: 20140926
  Transmission Date: 20150326
  Serious: Yes (Hospitalization, Other)
  Sender: FDA-Public Use
  Company Number: PHHY2014KR123006

PATIENT
  Age: 74 Year
  Sex: Female

DRUGS (5)
  1. ACETYLSALICYLIC ACID [Interacting]
     Active Substance: ASPIRIN
  2. TRICYCLIC ANTIDEPRESSANTS [Interacting]
     Active Substance: UNSPECIFIED INGREDIENT
  3. VALPROIC ACID. [Suspect]
     Active Substance: VALPROIC ACID
  4. RANITIDINE [Interacting]
     Active Substance: RANITIDINE\RANITIDINE HYDROCHLORIDE
  5. HERBAL EXTRACT NOS [Interacting]
     Active Substance: HERBALS

REACTIONS (4)
  - Haematuria [Unknown]
  - Drug interaction [Unknown]
  - Gingival bleeding [Unknown]
  - Coagulopathy [Unknown]
